FAERS Safety Report 22708106 (Version 4)
Quarter: 2023Q4

REPORT INFORMATION
  Report Type: Spontaneous
  Country: RO (occurrence: RO)
  Receive Date: 20230715
  Receipt Date: 20231002
  Transmission Date: 20240110
  Serious: Yes (Other)
  Sender: FDA-Public Use
  Company Number: RO-002147023-NVSC2023RO156088

PATIENT
  Sex: Male

DRUGS (1)
  1. COSENTYX [Suspect]
     Active Substance: SECUKINUMAB
     Indication: Psoriasis
     Dosage: 300 MG, Q2W
     Route: 058

REACTIONS (12)
  - Cerebrovascular accident [Recovering/Resolving]
  - Aphasia [Unknown]
  - Sensory loss [Unknown]
  - Disorientation [Unknown]
  - Confusional state [Unknown]
  - Dysarthria [Unknown]
  - Gait disturbance [Unknown]
  - Fall [Unknown]
  - Balance disorder [Unknown]
  - Coordination abnormal [Unknown]
  - Dizziness [Unknown]
  - Motor dysfunction [Unknown]
